FAERS Safety Report 10196625 (Version 1)
Quarter: 2014Q2

REPORT INFORMATION
  Report Type: Spontaneous
  Country: US (occurrence: None)
  Receive Date: 20140522
  Receipt Date: 20140522
  Transmission Date: 20141212
  Serious: Yes (Other)
  Sender: FDA-Public Use
  Company Number: 201405043

PATIENT
  Age: 74 Year
  Sex: Male
  Weight: 142.43 kg

DRUGS (9)
  1. TESTOPEL [Suspect]
     Indication: HORMONE REPLACEMENT THERAPY
     Dosage: PELLETS
     Route: 058
     Dates: start: 2013
  2. THYROXINE [Concomitant]
  3. GLIMEPIRIDE [Concomitant]
  4. RAMIPRIL [Concomitant]
  5. TOPROL XL [Concomitant]
  6. VYTORIN [Concomitant]
  7. FUROSEMIDE [Concomitant]
  8. ASPIRIN [Concomitant]
  9. FISH OIL [Concomitant]

REACTIONS (2)
  - Deafness unilateral [None]
  - Red blood cell count increased [None]
